FAERS Safety Report 20546641 (Version 1)
Quarter: 2022Q1

REPORT INFORMATION
  Report Type: Spontaneous
  Country: PT (occurrence: PT)
  Receive Date: 20220303
  Receipt Date: 20220303
  Transmission Date: 20220423
  Serious: Yes (Other)
  Sender: FDA-Public Use
  Company Number: PT-TAKEDA-2022TUS009288

PATIENT
  Age: 19 Year
  Sex: Female

DRUGS (3)
  1. HUMAN IMMUNOGLOBULIN G [Suspect]
     Active Substance: HUMAN IMMUNOGLOBULIN G
     Indication: Immunodeficiency common variable
     Dosage: 0.7 MILLIGRAM/KILOGRAM, QMT
     Route: 042
     Dates: start: 201805
  2. HUMAN IMMUNOGLOBULIN G [Suspect]
     Active Substance: HUMAN IMMUNOGLOBULIN G
     Dosage: 4.95 GRAM, QW
     Route: 058
  3. IRON [Concomitant]
     Active Substance: IRON
     Indication: Iron deficiency anaemia
     Route: 048

REACTIONS (3)
  - Kidney fibrosis [Recovering/Resolving]
  - Renal tubular atrophy [Recovering/Resolving]
  - Tubulointerstitial nephritis [Recovering/Resolving]
